FAERS Safety Report 4759861-9 (Version None)
Quarter: 2005Q3

REPORT INFORMATION
  Report Type: 
  Country: None (occurrence: None)
  Receive Date: 20050831
  Receipt Date: 20050831
  Transmission Date: 20060218
  Serious: Yes (Hospitalization)
  Sender: FDA-Public Use
  Company Number: None

PATIENT
  Age: 64 Year
  Sex: Female

DRUGS (14)
  1. MORPHINE [Suspect]
     Indication: BREAST CANCER METASTATIC
     Dosage: 400 MG  TID PO
     Route: 048
  2. MORPHINE [Suspect]
     Dosage: 60 MG Q4HPRN  PO
     Route: 048
  3. MORPHINE CONTROLLED-RELEASE -MS CONTIN [Concomitant]
  4. MORPHINE IMMEDIATE-RELEASE -MSIR- [Concomitant]
  5. PREDNISONE -DELTASONE- [Concomitant]
  6. REGLAN [Concomitant]
  7. PLAVIX [Concomitant]
  8. ZANTAC [Concomitant]
  9. LORAZEPAM [Concomitant]
  10. ASPIRIN [Concomitant]
  11. PROMETHAZINE -PHENERGAN- [Concomitant]
  12. DOCUSATE SODIUM [Concomitant]
  13. SENNA [Concomitant]
  14. CYANOCOBALAMIN [Concomitant]

REACTIONS (6)
  - CONFUSIONAL STATE [None]
  - DEPRESSED LEVEL OF CONSCIOUSNESS [None]
  - DRUG WITHDRAWAL SYNDROME [None]
  - INFECTION [None]
  - MENTAL STATUS CHANGES [None]
  - SOMNOLENCE [None]
